FAERS Safety Report 7113708-4 (Version None)
Quarter: 2010Q4

REPORT INFORMATION
  Report Type: 
  Country: None (occurrence: None)
  Receive Date: 20101119
  Receipt Date: 20101111
  Transmission Date: 20110411
  Serious: Yes (Hospitalization)
  Sender: FDA-Public Use
  Company Number: US-JNJFOC-20101104243

PATIENT
  Age: 63 Year
  Sex: Male

DRUGS (1)
  1. STELARA [Suspect]
     Indication: PSORIASIS
     Route: 058

REACTIONS (5)
  - ALTERED VISUAL DEPTH PERCEPTION [None]
  - ATAXIA [None]
  - BACK PAIN [None]
  - HEADACHE [None]
  - VISION BLURRED [None]
